FAERS Safety Report 8589452-3 (Version None)
Quarter: 2012Q3

REPORT INFORMATION
  Report Type: 
  Country: None (occurrence: None)
  Receive Date: 20120813
  Receipt Date: 20120801
  Transmission Date: 20120928
  Serious: Yes (Hospitalization)
  Sender: FDA-Public Use
  Company Number: US-009507513-1208USA003530

PATIENT

DRUGS (7)
  1. ANGIOMAX [Concomitant]
  2. ASPIRIN [Concomitant]
  3. LOPRESSOR [Concomitant]
  4. PLAVEX [Concomitant]
  5. PEPCID [Concomitant]
  6. INTEGRILIN [Suspect]
     Indication: ACUTE CORONARY SYNDROME
     Dosage: UNK
     Route: 065
     Dates: start: 20120606, end: 20120606
  7. ZOCOR [Concomitant]

REACTIONS (1)
  - THROMBOCYTOPENIA [None]
